FAERS Safety Report 8910053 (Version 2)
Quarter: 2013Q1

REPORT INFORMATION
  Report Type: Spontaneous
  Country: US (occurrence: US)
  Receive Date: 20121115
  Receipt Date: 20130123
  Transmission Date: 20140127
  Serious: No
  Sender: FDA-Public Use
  Company Number: US-009507513-1211USA006107

PATIENT
  Age: 83 Year
  Sex: Female

DRUGS (1)
  1. DULERA [Suspect]
     Indication: BRONCHITIS
     Dosage: UNK

REACTIONS (1)
  - Insomnia [Unknown]
